FAERS Safety Report 6431828-4 (Version None)
Quarter: 2009Q4

REPORT INFORMATION
  Report Type: 
  Country: None (occurrence: None)
  Receive Date: 20091104
  Receipt Date: 20091022
  Transmission Date: 20100525
  Serious: Yes (Hospitalization)
  Sender: FDA-Public Use
  Company Number: GB-DEXPHARM-20091780

PATIENT
  Age: 40 Year
  Sex: Female

DRUGS (7)
  1. OMEPRAZOLE [Suspect]
     Indication: COLITIS ULCERATIVE
     Dosage: 20 MG MILLGRAM(S)
  2. CLOZARIL [Suspect]
     Indication: SCHIZOPHRENIA
     Dosage: 350 MG MILLIGRAM (S), 1 IN 1 DAY, ORAL
     Route: 048
     Dates: start: 20000805, end: 20090911
  3. CLOZARIL [Suspect]
     Indication: SCHIZOPHRENIA
     Dosage: 350 MG MILLIGRAM (S), 1 IN 1 DAY, ORAL
     Route: 048
     Dates: start: 20090913, end: 20090914
  4. AMITRIPTYLINE HCL [Suspect]
     Indication: MOOD ALTERED
  5. CITALOPRAM HYDROBROMIDE [Suspect]
     Indication: DEPRESSED MOOD
     Dosage: 40 MG MILLIGRMA (S), ORAL
     Route: 048
  6. PRIADEL [Suspect]
     Indication: AFFECTIVE DISORDER
     Dosage: 800 MG MILLIGRAM (S), ORAL
     Route: 048
  7. BALSALAZIDE [Concomitant]

REACTIONS (5)
  - DRUG DOSE OMISSION [None]
  - INTESTINAL OBSTRUCTION [None]
  - NEUTROPHIL COUNT INCREASED [None]
  - PLATELET COUNT INCREASED [None]
  - PULMONARY THROMBOSIS [None]
